FAERS Safety Report 8045946-0 (Version None)
Quarter: 2012Q1

REPORT INFORMATION
  Report Type: 
  Country: None (occurrence: None)
  Receive Date: 20120113
  Receipt Date: 20120110
  Transmission Date: 20120608
  Serious: Yes (Death)
  Sender: FDA-Public Use
  Company Number: DE-GLAXOSMITHKLINE-D0073050A

PATIENT
  Sex: Female

DRUGS (8)
  1. VALPROATE SODIUM [Concomitant]
     Indication: EPILEPSY
     Dosage: 2000MG PER DAY
     Route: 048
  2. KEPPRA [Concomitant]
     Indication: EPILEPSY
     Dosage: 2000MG PER DAY
     Route: 048
  3. TROBALT [Suspect]
     Indication: EPILEPSY
     Dosage: 50MG THREE TIMES PER DAY
     Route: 048
     Dates: start: 20110630, end: 20110709
  4. LEVOTHYROXINE SODIUM [Concomitant]
     Dosage: 75UG PER DAY
     Route: 048
  5. LEVODOPA [Concomitant]
     Indication: EPILEPSY
     Dosage: 1750MG PER DAY
     Route: 065
  6. TRIMIPRAMINE MALEATE [Concomitant]
     Dosage: 50MG PER DAY
     Route: 048
  7. CELIPROLICH [Concomitant]
     Dosage: 100MG TWICE PER DAY
     Route: 048
  8. HYDROCHLOROTHIAZIDE + OLMESARTAN MEDOXOMIL [Concomitant]
     Dosage: 32.5MG TWICE PER DAY
     Route: 048

REACTIONS (2)
  - SUDDEN UNEXPLAINED DEATH IN EPILEPSY [None]
  - CARDIAC DEATH [None]
